FAERS Safety Report 9397294 (Version 1)
Quarter: 2013Q3

REPORT INFORMATION
  Report Type: Spontaneous
  Country: DE (occurrence: DE)
  Receive Date: 20130712
  Receipt Date: 20130712
  Transmission Date: 20140515
  Serious: Yes (Hospitalization)
  Sender: FDA-Public Use
  Company Number: DE-AMGEN-DEUSP2013048910

PATIENT
  Age: 56 Year
  Sex: Female
  Weight: 101 kg

DRUGS (4)
  1. ENBREL [Suspect]
     Indication: PSORIATIC ARTHROPATHY
     Dosage: 25 MG, UNK
     Route: 058
     Dates: start: 20120321
  2. ENBREL [Suspect]
     Indication: PSORIASIS
  3. METHOTREXATE SODIUM [Suspect]
     Indication: PSORIATIC ARTHROPATHY
     Dosage: 7.5 MG, UNK
     Route: 058
     Dates: start: 20041021
  4. FOLIC ACID [Concomitant]
     Indication: PSORIATIC ARTHROPATHY
     Dosage: 5 MG, UNK
     Dates: start: 20041021

REACTIONS (1)
  - Breast cancer [Not Recovered/Not Resolved]
